FAERS Safety Report 17448264 (Version 2)
Quarter: 2020Q2

REPORT INFORMATION
  Report Type: Spontaneous
  Country: GR (occurrence: GR)
  Receive Date: 20200223
  Receipt Date: 20200523
  Transmission Date: 20200713
  Serious: Yes (Other)
  Sender: FDA-Public Use
  Company Number: NVSC2020GR047619

PATIENT
  Age: 3 Year
  Sex: Female

DRUGS (4)
  1. DEFEROXAMINE [Suspect]
     Active Substance: DEFEROXAMINE MESYLATE
     Dosage: 2000 MG, QW (5 TIMES)
     Route: 065
     Dates: start: 19930520, end: 200107
  2. DEFEROXAMINE [Suspect]
     Active Substance: DEFEROXAMINE MESYLATE
     Dosage: 1500 MG, TIW
     Route: 065
     Dates: start: 198508, end: 19930520
  3. DEFEROXAMINE [Suspect]
     Active Substance: DEFEROXAMINE MESYLATE
     Indication: THALASSAEMIA BETA
     Dosage: 45 MG/KG, QD(35-45 MG/KG/D (5-7X/WK)
     Route: 065
     Dates: start: 1985, end: 2001
  4. DEFEROXAMINE [Suspect]
     Active Substance: DEFEROXAMINE MESYLATE
     Dosage: 3000 MG, EVERY 20 DAYS
     Route: 042
     Dates: start: 19930520, end: 200107

REACTIONS (2)
  - Serum ferritin abnormal [Unknown]
  - Haemosiderosis [Unknown]

NARRATIVE: CASE EVENT DATE: 20010327
